FAERS Safety Report 11756039 (Version 4)
Quarter: 2016Q2

REPORT INFORMATION
  Report Type: Spontaneous
  Country: US (occurrence: US)
  Receive Date: 20151119
  Receipt Date: 20160518
  Transmission Date: 20160815
  Serious: Yes (Hospitalization, Other)
  Sender: FDA-Public Use
  Company Number: US-PFIZER INC-2015395392

PATIENT
  Age: 60 Year
  Sex: Female
  Weight: 58 kg

DRUGS (18)
  1. NITROSTAT [Concomitant]
     Active Substance: NITROGLYCERIN
     Indication: CHEST PAIN
     Dosage: 0.4 MG, AS NEEDED (PLACE 1 TABLET UNDER THE TONGUE EVERY 5 MINUTES FOR UP TO 3 DOSES AS NEEDED)
     Route: 060
     Dates: start: 20140829
  2. BUMETANIDE. [Concomitant]
     Active Substance: BUMETANIDE
     Indication: OEDEMA
     Dosage: TAKE 2 TABLETS IN THE A.M., 1 TABLET IN THE AFTERNOON, AND 2 TABLETS IN THE P.M.
     Route: 048
     Dates: start: 20130731
  3. METHOCARBAMOL. [Concomitant]
     Active Substance: METHOCARBAMOL
     Indication: BACK PAIN
     Dosage: 750 MG, 2X/DAY  (TAKE 1 TABLET TWICE DAILY AS DIRECTED)
     Route: 048
     Dates: start: 20110118
  4. WARFARIN SODIUM. [Concomitant]
     Active Substance: WARFARIN SODIUM
     Indication: ANTICOAGULANT THERAPY
     Dosage: 4 MG, UNK, (TAKE 1 TABLET AS DIRECTED DEPENDING ON INR)
     Route: 048
     Dates: start: 20150930
  5. ALPRAZOLAM. [Concomitant]
     Active Substance: ALPRAZOLAM
     Indication: ANXIETY DISORDER
     Dosage: 1 MG, 3X/DAY (TAKE 1 TABLET EVERY 8 HOURS AS NEEDED)
     Route: 048
     Dates: start: 20110118
  6. DUONEB [Concomitant]
     Active Substance: ALBUTEROL SULFATE\IPRATROPIUM BROMIDE
     Indication: CHRONIC OBSTRUCTIVE PULMONARY DISEASE
     Dosage: 1 IU, 4X/DAY (1 UNIT DOSE IN NEBULIZER), (IPRATROPIUMBROMIDE:0.5/3ML/SALBUTAMOLSULFATE:2.5-3MG/3ML)
     Dates: start: 20110909
  7. DUONEB [Concomitant]
     Active Substance: ALBUTEROL SULFATE\IPRATROPIUM BROMIDE
     Indication: BRONCHITIS
  8. LYRICA [Suspect]
     Active Substance: PREGABALIN
     Indication: PAIN
     Dosage: 100 MG, 2X/DAY
     Route: 048
     Dates: start: 20130930
  9. COMBIVENT RESPIMAT [Concomitant]
     Active Substance: ALBUTEROL SULFATE\IPRATROPIUM BROMIDE
     Indication: CHRONIC OBSTRUCTIVE PULMONARY DISEASE
     Dosage: (IPRATROPIUM BROMIDE: 20 MCG/ACT , SALBUTAMOL SULFATE: 100 MCG/ACT), (1 INHALATION EVERY 6 HOURS)
     Dates: start: 20150625
  10. DME [Concomitant]
     Indication: HYPERGLYCAEMIA
     Dosage: UNK, 2X/DAY, (GLUCOMETER AND TEST STRIPS AND LANCETS FOR UP TO BID TESTING)
     Dates: start: 20151016
  11. ACETAMINOPHEN\HYDROCODONE BITARTRATE [Concomitant]
     Active Substance: ACETAMINOPHEN\HYDROCODONE BITARTRATE
     Indication: ARTHRALGIA
     Dosage: 1 DF, 3X/DAY, (1 TABLET EVERY 8 HOURS AS NEEDED) (HYDROCODONE: 10MG/ACETAMINOPHEN: 325MG)
     Route: 048
     Dates: start: 20120620
  12. DUONEB [Concomitant]
     Active Substance: ALBUTEROL SULFATE\IPRATROPIUM BROMIDE
     Indication: BRONCHITIS CHRONIC
  13. ACETAMINOPHEN\HYDROCODONE BITARTRATE [Concomitant]
     Active Substance: ACETAMINOPHEN\HYDROCODONE BITARTRATE
     Indication: PAIN
  14. SIMVASTATIN. [Concomitant]
     Active Substance: SIMVASTATIN
     Indication: PAIN IN EXTREMITY
     Dosage: 40 MG, 1X/DAY
     Route: 048
     Dates: start: 20110214
  15. LYRICA [Suspect]
     Active Substance: PREGABALIN
     Indication: NEURITIS
  16. SPIRONOLACTONE. [Concomitant]
     Active Substance: SPIRONOLACTONE
     Indication: CARDIAC FAILURE CONGESTIVE
     Dosage: 50 MG, 2X/DAY
     Route: 048
     Dates: start: 20141209
  17. METOPROLOL TARTRATE. [Concomitant]
     Active Substance: METOPROLOL TARTRATE
     Indication: HYPERTENSION
     Dosage: 25 MG ORAL TABLET TAKE 1/2 TABLET TWICE DAILY
     Route: 048
     Dates: start: 20110223
  18. PROMETHAZINE HCL [Concomitant]
     Active Substance: PROMETHAZINE HYDROCHLORIDE
     Indication: NAUSEA
     Dosage: 25 MG, 4X/DAY (TAKE 1 TABLET EVERY 6 HOURS AS NEEDED)
     Route: 048
     Dates: start: 20130829

REACTIONS (7)
  - Cardiac valve disease [Unknown]
  - Hallucination [Recovered/Resolved]
  - Fungal infection [Recovered/Resolved]
  - Blood viscosity decreased [Recovered/Resolved]
  - Altered state of consciousness [Recovered/Resolved]
  - Fungaemia [Recovered/Resolved]
  - Asthenia [Recovered/Resolved]
